FAERS Safety Report 6664817-5 (Version None)
Quarter: 2010Q2

REPORT INFORMATION
  Report Type: 
  Country: None (occurrence: None)
  Receive Date: 20100402
  Receipt Date: 20100325
  Transmission Date: 20101027
  Serious: Yes (Hospitalization)
  Sender: FDA-Public Use
  Company Number: US-BIOGENIDEC-2009BI029179

PATIENT
  Age: 63 Year
  Sex: Female

DRUGS (1)
  1. TYSABRI [Suspect]
     Indication: MULTIPLE SCLEROSIS
     Route: 042
     Dates: start: 20070628

REACTIONS (7)
  - ASTHENIA [None]
  - COLITIS [None]
  - HYPOTENSION [None]
  - MALAISE [None]
  - MEMORY IMPAIRMENT [None]
  - PRESYNCOPE [None]
  - WHITE BLOOD CELL COUNT INCREASED [None]
